FAERS Safety Report 10413399 (Version 2)
Quarter: 2014Q4

REPORT INFORMATION
  Report Type: Spontaneous
  Country: US (occurrence: US)
  Receive Date: 20140827
  Receipt Date: 20141022
  Transmission Date: 20150528
  Serious: Yes (Other)
  Sender: FDA-Public Use
  Company Number: US-GLAXOSMITHKLINE-A1086745A

PATIENT
  Age: 36 Year
  Sex: Female

DRUGS (23)
  1. CLONIDINE. [Concomitant]
     Active Substance: CLONIDINE
  2. PRILOSEC [Concomitant]
     Active Substance: OMEPRAZOLE MAGNESIUM
  3. PERCOCET [Concomitant]
     Active Substance: ACETAMINOPHEN\OXYCODONE HYDROCHLORIDE
  4. EFFEXOR [Concomitant]
     Active Substance: VENLAFAXINE HYDROCHLORIDE
  5. CIPRO [Concomitant]
     Active Substance: CIPROFLOXACIN HYDROCHLORIDE
  6. ENSURE [Concomitant]
     Active Substance: AMINO ACIDS\DEXTROSE\ELECTROLYTES NOS\SOYBEAN OIL\VITAMINS
  7. ZOFRAN [Suspect]
     Active Substance: ONDANSETRON HYDROCHLORIDE
     Indication: PRODUCT USED FOR UNKNOWN INDICATION
     Route: 065
  8. HUMIRA [Suspect]
     Active Substance: ADALIMUMAB
     Indication: CROHN^S DISEASE
     Dosage: 40 MG, EVERY 2 WEEKS
     Route: 065
     Dates: start: 20140512
  9. SYMBICORT [Concomitant]
     Active Substance: BUDESONIDE\FORMOTEROL FUMARATE DIHYDRATE
  10. MERCAPTOPURINE. [Concomitant]
     Active Substance: MERCAPTOPURINE
  11. HCTZ [Concomitant]
     Active Substance: HYDROCHLOROTHIAZIDE
  12. ESTRADIOL. [Concomitant]
     Active Substance: ESTRADIOL
  13. PENTASA [Concomitant]
     Active Substance: MESALAMINE
  14. OXYGEN. [Concomitant]
     Active Substance: OXYGEN
  15. POTASSIUM [Concomitant]
     Active Substance: POTASSIUM
  16. FLAGYL [Concomitant]
     Active Substance: METRONIDAZOLE\METRONIDAZOLE HYDROCHLORIDE
  17. ENEMA (SODIUM PHOSPHATE, DIBASIC\SODIUM PHOSPHATE, MONOBASIC) [Concomitant]
     Active Substance: SODIUM PHOSPHATE, DIBASIC\SODIUM PHOSPHATE, MONOBASIC
  18. NIACIN. [Concomitant]
     Active Substance: NIACIN
  19. DIGOXIN. [Concomitant]
     Active Substance: DIGOXIN
  20. ANTI-CHOLESTEROL MEDICATION [Concomitant]
     Active Substance: UNSPECIFIED INGREDIENT
  21. XANAX [Concomitant]
     Active Substance: ALPRAZOLAM
  22. HUMIRA [Suspect]
     Active Substance: ADALIMUMAB
     Indication: COLITIS ULCERATIVE
  23. ALBUTEROL. [Concomitant]
     Active Substance: ALBUTEROL

REACTIONS (12)
  - Hyperhidrosis [Unknown]
  - Food intolerance [Unknown]
  - Hypertension [Unknown]
  - Drug ineffective [Unknown]
  - Crohn^s disease [Unknown]
  - Hypersomnia [Unknown]
  - Mucous stools [Not Recovered/Not Resolved]
  - Asthenia [Unknown]
  - Haematochezia [Unknown]
  - Painful defaecation [Unknown]
  - Vomiting [Unknown]
  - Fatigue [Unknown]

NARRATIVE: CASE EVENT DATE: 201407
